FAERS Safety Report 5127966-9 (Version None)
Quarter: 2006Q4

REPORT INFORMATION
  Report Type: 
  Country: None (occurrence: None)
  Receive Date: 20061010
  Receipt Date: 20060927
  Transmission Date: 20070319
  Serious: Yes (Other)
  Sender: FDA-Public Use
  Company Number: 2006118680

PATIENT
  Age: 29 Year
  Sex: Female

DRUGS (3)
  1. CYTOTEC [Suspect]
     Dosage: 400 MCG (1 IN 2 WK); ORAL
     Route: 048
     Dates: start: 20060401, end: 20060718
  2. IBUPROFEN [Suspect]
     Dosage: ORAL
     Route: 048
     Dates: start: 20060401, end: 20060718
  3. GYNERA (ETHINYLESTRADIOL, GESTODENE) [Suspect]
     Indication: CONTRACEPTION
     Dosage: UNKNOWN (1 IN 1 D); ORAL
     Route: 048
     Dates: start: 20060101, end: 20060718

REACTIONS (2)
  - DRUG EXPOSURE DURING PREGNANCY [None]
  - PREGNANCY ON ORAL CONTRACEPTIVE [None]
